FAERS Safety Report 7173024-1 (Version None)
Quarter: 2010Q4

REPORT INFORMATION
  Report Type: 
  Country: None (occurrence: None)
  Receive Date: 20101219
  Receipt Date: 20100218
  Transmission Date: 20110411
  Serious: No
  Sender: FDA-Public Use
  Company Number: US-AMGEN-KDL393751

PATIENT

DRUGS (6)
  1. ENBREL [Suspect]
     Indication: PRODUCT USED FOR UNKNOWN INDICATION
     Dosage: 50 MG, 2 TIMES/WK
     Route: 058
  2. IBUPROFEN [Concomitant]
     Dosage: 400 MG, UNK
  3. CLONIDINE [Concomitant]
     Dosage: .3 MG, UNK
  4. ESCITALOPRAM [Concomitant]
     Dosage: 20 MG, UNK
  5. ACETAMINOPHEN [Concomitant]
     Dosage: 325 MG, UNK
  6. ORAP [Concomitant]
     Dosage: 2 MG, UNK

REACTIONS (2)
  - DECREASED APPETITE [None]
  - WEIGHT DECREASED [None]
